FAERS Safety Report 20232735 (Version 3)
Quarter: 2023Q1

REPORT INFORMATION
  Report Type: Report from Study
  Country: US (occurrence: None)
  Receive Date: 20211227
  Receipt Date: 20230321
  Transmission Date: 20230417
  Serious: Yes (Hospitalization, Other)
  Sender: FDA-Public Use
  Company Number: US-ROCHE-2900879

PATIENT
  Age: 74 Year
  Sex: Male
  Weight: 84.8 kg

DRUGS (6)
  1. TOCILIZUMAB [Suspect]
     Active Substance: TOCILIZUMAB
     Indication: Malignant melanoma
     Dosage: DATE OF LAST TREATMENT: 26/JUN/2021, 04/AUG/2021
     Route: 042
     Dates: start: 20210615
  2. IPILIMUMAB [Suspect]
     Active Substance: IPILIMUMAB
     Indication: Malignant melanoma
     Dosage: DATE OF LAST TREATMENT 26/AUG/2021
     Route: 042
     Dates: start: 20210615
  3. NIVOLUMAB [Suspect]
     Active Substance: NIVOLUMAB
     Indication: Malignant melanoma
     Dosage: DATE OF LAST TREATMENT 26/AUG/2021
     Route: 042
     Dates: start: 20210615
  4. AZITHROMYCIN [Concomitant]
     Active Substance: AZITHROMYCIN
  5. CEFTRIAXONE [Concomitant]
     Active Substance: CEFTRIAXONE
  6. ONDANSETRON [Concomitant]
     Active Substance: ONDANSETRON

REACTIONS (5)
  - Dizziness [Recovered/Resolved]
  - Alanine aminotransferase increased [Not Recovered/Not Resolved]
  - Aspartate aminotransferase increased [Not Recovered/Not Resolved]
  - Hyponatraemia [Not Recovered/Not Resolved]
  - Hepatitis [Unknown]

NARRATIVE: CASE EVENT DATE: 20210819
